FAERS Safety Report 6136247-6 (Version None)
Quarter: 2009Q1

REPORT INFORMATION
  Report Type: 
  Country: None (occurrence: None)
  Receive Date: 20090330
  Receipt Date: 20090324
  Transmission Date: 20090719
  Serious: Yes (Hospitalization)
  Sender: FDA-Public Use
  Company Number: US-BIOGENIDEC-2009BI009514

PATIENT
  Age: 53 Year
  Sex: Female

DRUGS (2)
  1. TYSABRI [Suspect]
     Indication: MULTIPLE SCLEROSIS
     Route: 042
     Dates: start: 20061007, end: 20090123
  2. TYSABRI [Suspect]
     Route: 042
     Dates: start: 20090320

REACTIONS (2)
  - GASTRIC BYPASS [None]
  - WEIGHT DECREASED [None]
